FAERS Safety Report 7304177-X (Version None)
Quarter: 2011Q1

REPORT INFORMATION
  Report Type: 
  Country: None (occurrence: None)
  Receive Date: 20110221
  Receipt Date: 20101207
  Transmission Date: 20110831
  Serious: Yes (Hospitalization)
  Sender: FDA-Public Use
  Company Number: US-BAYER-201033345NA

PATIENT
  Sex: Female
  Weight: 56.689 kg

DRUGS (3)
  1. HYDROXYZINE [Concomitant]
  2. YASMIN [Suspect]
     Indication: CONTRACEPTION
     Dosage: UNK UNK, UNK
     Route: 065
     Dates: start: 20040101, end: 20080501
  3. WELLBUTRIN [Concomitant]
     Indication: DEPRESSION
     Dosage: 75 MG, UNK

REACTIONS (6)
  - CHOLESTEROSIS [None]
  - NAUSEA [None]
  - VOMITING [None]
  - INCISION SITE HAEMORRHAGE [None]
  - ABDOMINAL PAIN [None]
  - CHOLECYSTITIS CHRONIC [None]
